FAERS Safety Report 7645414-1 (Version None)
Quarter: 2011Q3

REPORT INFORMATION
  Report Type: 
  Country: None (occurrence: None)
  Receive Date: 20110729
  Receipt Date: 20110720
  Transmission Date: 20111222
  Serious: Yes (Other)
  Sender: FDA-Public Use
  Company Number: CA-JNJFOC-20110400235

PATIENT
  Sex: Female
  Weight: 61.5 kg

DRUGS (8)
  1. REMICADE [Suspect]
     Indication: CROHN'S DISEASE
     Route: 042
  2. REMICADE [Suspect]
     Dosage: INFUSION #50
     Route: 042
     Dates: start: 20110329, end: 20110329
  3. CRESTOR [Concomitant]
  4. BENADRYL [Concomitant]
     Indication: PREMEDICATION
     Dosage: INTRAVENOUS OR AT HOME AS PER PATIENT
  5. PURINETHOL [Concomitant]
     Route: 065
  6. PAXIL [Concomitant]
  7. PREDNISONE [Concomitant]
     Indication: PREMEDICATION
     Dosage: 13:00, 7:00, 1:00 BEFOREHAND
     Route: 048
  8. MICARDIS [Concomitant]

REACTIONS (7)
  - DYSPHONIA [None]
  - SWELLING FACE [None]
  - HOT FLUSH [None]
  - OCULAR HYPERAEMIA [None]
  - INFUSION RELATED REACTION [None]
  - OXYGEN SATURATION DECREASED [None]
  - ADVERSE EVENT [None]
